FAERS Safety Report 4954195-1 (Version None)
Quarter: 2006Q1

REPORT INFORMATION
  Report Type: 
  Country: None (occurrence: None)
  Receive Date: 20060327
  Receipt Date: 20051007
  Transmission Date: 20060701
  Serious: Yes (Hospitalization)
  Sender: FDA-Public Use
  Company Number: US-MERCK-0510USA06405

PATIENT
  Age: 33 Year
  Sex: Male

DRUGS (1)
  1. VIOXX [Suspect]
     Route: 048

REACTIONS (5)
  - BACK PAIN [None]
  - CARDIOVASCULAR DISORDER [None]
  - INTERVERTEBRAL DISC PROTRUSION [None]
  - PAIN [None]
  - RADICULOPATHY [None]
